FAERS Safety Report 9438327 (Version 1)
Quarter: 2013Q3

REPORT INFORMATION
  Report Type: Spontaneous
  Country: US (occurrence: US)
  Receive Date: 20130802
  Receipt Date: 20130802
  Transmission Date: 20140515
  Serious: No
  Sender: FDA-Public Use
  Company Number: US-BRISTOL-MYERS SQUIBB COMPANY-17031881

PATIENT
  Age: 58 Year
  Sex: Female

DRUGS (1)
  1. COUMADIN [Suspect]
     Indication: AORTIC VALVE REPLACEMENT
     Dosage: (3MG,TAB PLUS 1MG TAB),3MG ALL DYS WK,DSEINCR:4MG DAILY,3MG OTHR DYS WK,3MG BLISTER TABS 05OCT2012

REACTIONS (1)
  - International normalised ratio abnormal [Unknown]
